FAERS Safety Report 25949328 (Version 2)
Quarter: 2025Q4

REPORT INFORMATION
  Report Type: Spontaneous
  Country: AU (occurrence: AU)
  Receive Date: 20251022
  Receipt Date: 20251204
  Transmission Date: 20260117
  Serious: No
  Sender: MYLAN
  Company Number: AU-MYLANLABS-2025M1086363

PATIENT
  Age: 5 Year
  Sex: Male

DRUGS (1)
  1. EPIPEN JR [Suspect]
     Active Substance: EPINEPHRINE
     Indication: Product used for unknown indication
     Dosage: UNK

REACTIONS (1)
  - Product quality issue [Unknown]
